FAERS Safety Report 22158038 (Version 1)
Quarter: 2023Q1

REPORT INFORMATION
  Report Type: Spontaneous
  Country: US (occurrence: US)
  Receive Date: 20230330
  Receipt Date: 20230330
  Transmission Date: 20230417
  Serious: Yes (Other)
  Sender: FDA-Public Use
  Company Number: US-LUNDBECK-DKLU3060090

PATIENT
  Age: 60 Year
  Sex: Female

DRUGS (3)
  1. NORTHERA [Suspect]
     Active Substance: DROXIDOPA
     Indication: Neurodegenerative disorder
     Dosage: TOTAL DAILY DOSE: 2000MG
     Route: 065
  2. NORTHERA [Suspect]
     Active Substance: DROXIDOPA
     Dosage: TOTAL DAILY DOSE: 2000MG
     Route: 065
  3. NORTHERA [Suspect]
     Active Substance: DROXIDOPA
     Dosage: TOTAL DAILY DOSE: 2000MG
     Route: 065

REACTIONS (6)
  - Loss of consciousness [Unknown]
  - Urinary incontinence [Unknown]
  - Dizziness [Unknown]
  - Weight decreased [Unknown]
  - Drug ineffective [Unknown]
  - Overdose [Unknown]
